FAERS Safety Report 10185135 (Version 1)
Quarter: 2014Q2

REPORT INFORMATION
  Report Type: Spontaneous
  Country: US (occurrence: US)
  Receive Date: 20140521
  Receipt Date: 20140521
  Transmission Date: 20141212
  Serious: Yes (Other)
  Sender: FDA-Public Use
  Company Number: CHPA2014US006780

PATIENT
  Age: 83 Year
  Sex: Male

DRUGS (5)
  1. PREVACID 24HR 15MG [Suspect]
     Indication: OESOPHAGEAL DISORDER
     Dosage: 2 DF, QD
     Route: 048
     Dates: start: 2009
  2. PREVACID 24HR 15MG [Suspect]
     Indication: OFF LABEL USE
     Dosage: 2 DF, QD
     Route: 048
  3. ECOTRIN [Concomitant]
     Indication: STENT PLACEMENT
     Dosage: UNK, QD
     Route: 048
  4. ATORVASTATIN [Concomitant]
     Indication: STENT PLACEMENT
     Dosage: UNK, QD
  5. FOLIC ACID [Concomitant]
     Indication: STENT PLACEMENT
     Dosage: UNK, QD

REACTIONS (5)
  - Diabetes mellitus [Not Recovered/Not Resolved]
  - Prostatic disorder [Not Recovered/Not Resolved]
  - Fluid retention [Not Recovered/Not Resolved]
  - Dysphagia [Not Recovered/Not Resolved]
  - Incorrect drug administration duration [Unknown]
